FAERS Safety Report 5034404-3 (Version None)
Quarter: 2006Q2

REPORT INFORMATION
  Report Type: 
  Country: None (occurrence: None)
  Receive Date: 20060626
  Receipt Date: 20060125
  Transmission Date: 20061013
  Serious: Yes (Death, Hospitalization)
  Sender: FDA-Public Use
  Company Number: PHBS2006JP01465

PATIENT
  Age: 50 Year
  Sex: Male
  Weight: 40 kg

DRUGS (5)
  1. DERMOVATE [Concomitant]
     Route: 061
     Dates: end: 20051222
  2. NEORAL [Suspect]
     Indication: PSORIASIS
     Dosage: 100 MG/D
     Route: 048
     Dates: start: 20051207, end: 20051221
  3. POLARAMINE [Concomitant]
     Indication: PRURITUS
     Dosage: 6 MG/D
     Route: 048
     Dates: start: 20051019, end: 20051222
  4. ALLELOCK [Concomitant]
     Indication: PRURITUS
     Dosage: 10 MG/D
     Route: 048
     Dates: start: 20041008, end: 20051222
  5. GASTER D [Concomitant]
     Indication: GASTRIC MUCOSAL LESION
     Dosage: 20 MG/D
     Route: 048
     Dates: start: 20051217, end: 20051222

REACTIONS (15)
  - ABDOMINAL PAIN [None]
  - BLOOD AMYLASE INCREASED [None]
  - BLOOD CREATINE PHOSPHOKINASE INCREASED [None]
  - BLOOD GLUCOSE INCREASED [None]
  - BLOOD PRESSURE INCREASED [None]
  - C-REACTIVE PROTEIN INCREASED [None]
  - CARDIAC ARREST [None]
  - DEPRESSED LEVEL OF CONSCIOUSNESS [None]
  - INTESTINAL OBSTRUCTION [None]
  - NAUSEA [None]
  - PANCREATITIS [None]
  - PYREXIA [None]
  - VOMITING [None]
  - WHITE BLOOD CELL COUNT DECREASED [None]
  - WHITE BLOOD CELL COUNT INCREASED [None]
